APPROVED DRUG PRODUCT: MICONAZOLE NITRATE
Active Ingredient: MICONAZOLE NITRATE
Strength: 100MG
Dosage Form/Route: SUPPOSITORY;VAGINAL
Application: A074395 | Product #001
Applicant: L PERRIGO CO
Approved: Mar 20, 1997 | RLD: No | RS: No | Type: DISCN